FAERS Safety Report 18644507 (Version 1)
Quarter: 2020Q4

REPORT INFORMATION
  Report Type: Spontaneous
  Country: GB (occurrence: GB)
  Receive Date: 20201221
  Receipt Date: 20201221
  Transmission Date: 20210114
  Serious: Yes (Other)
  Sender: FDA-Public Use
  Company Number: GB-INDIVIOR US-INDV-127649-2020

PATIENT
  Age: 41 Year
  Sex: Male
  Weight: 108.86 kg

DRUGS (1)
  1. TEMGESIC INJECTION [Suspect]
     Active Substance: BUPRENORPHINE HYDROCHLORIDE
     Indication: PAIN
     Dosage: 20 MICROGRAM, UNK
     Route: 008
     Dates: start: 20201125

REACTIONS (5)
  - Dizziness [Unknown]
  - Product use issue [Not Recovered/Not Resolved]
  - Euphoric mood [Unknown]
  - Dyspnoea [Not Recovered/Not Resolved]
  - Respiratory tract irritation [Unknown]

NARRATIVE: CASE EVENT DATE: 20201125
